FAERS Safety Report 9300549 (Version 2)
Quarter: 2013Q2

REPORT INFORMATION
  Report Type: Spontaneous
  Country: BR (occurrence: BR)
  Receive Date: 20130521
  Receipt Date: 20130528
  Transmission Date: 20140414
  Serious: Yes (Hospitalization, Other)
  Sender: FDA-Public Use
  Company Number: BR-PFIZER INC-2013151749

PATIENT
  Age: 55 Year
  Sex: Female
  Weight: 144 kg

DRUGS (4)
  1. NORVASC [Suspect]
     Indication: BLOOD PRESSURE
     Dosage: 5 MG, 1X/DAY
     Route: 048
     Dates: start: 20111107
  2. OLMETEC HCT [Suspect]
     Indication: BLOOD PRESSURE
     Dosage: 40 MG/12.5 MG ONCE DAILY
     Route: 048
     Dates: start: 20111107
  3. GLIFAGE [Concomitant]
     Indication: DIABETES MELLITUS MANAGEMENT
     Dosage: UNK
     Dates: start: 201211
  4. PURAN T4 [Concomitant]
     Indication: HYPOTHYROIDISM
     Dosage: UNK
     Dates: start: 2011

REACTIONS (5)
  - Limb injury [Unknown]
  - Inflammation of wound [Unknown]
  - Accident [Unknown]
  - Fall [Unknown]
  - Blood pressure inadequately controlled [Unknown]
